FAERS Safety Report 8377827-7 (Version None)
Quarter: 2012Q2

REPORT INFORMATION
  Report Type: 
  Country: None (occurrence: None)
  Receive Date: 20120522
  Receipt Date: 20120510
  Transmission Date: 20120825
  Serious: Yes (Other)
  Sender: FDA-Public Use
  Company Number: PL-BRISTOL-MYERS SQUIBB COMPANY-16589566

PATIENT
  Age: 39 Year
  Sex: Female

DRUGS (1)
  1. ATAZANAVIR [Suspect]
     Indication: ANTIRETROVIRAL THERAPY

REACTIONS (3)
  - HAND FRACTURE [None]
  - CEREBROVASCULAR ACCIDENT [None]
  - MICROCYTIC ANAEMIA [None]
